FAERS Safety Report 8221512-9 (Version None)
Quarter: 2012Q1

REPORT INFORMATION
  Report Type: 
  Country: None (occurrence: None)
  Receive Date: 20120313
  Receipt Date: 20120305
  Transmission Date: 20120608
  Serious: Yes (Other)
  Sender: FDA-Public Use
  Company Number: 2011SP054163

PATIENT
  Age: 27 Year
  Sex: Female
  Weight: 51.7101 kg

DRUGS (1)
  1. IMPLANON [Suspect]
     Indication: CONTRACEPTION
     Dosage: 1 DF; SBDE
     Route: 059
     Dates: start: 20111110

REACTIONS (3)
  - IMPLANT SITE PAIN [None]
  - SUPRAVENTRICULAR EXTRASYSTOLES [None]
  - CHEST PAIN [None]
